FAERS Safety Report 24064174 (Version 1)
Quarter: 2024Q3

REPORT INFORMATION
  Report Type: Spontaneous
  Country: US (occurrence: US)
  Receive Date: 20240709
  Receipt Date: 20240709
  Transmission Date: 20241017
  Serious: Yes (Hospitalization, Other)
  Sender: ACCORD
  Company Number: US-Accord-431000

PATIENT
  Age: 74 Year
  Sex: Male

DRUGS (2)
  1. MYCOPHENOLIC ACID [Suspect]
     Active Substance: MYCOPHENOLIC ACID
     Indication: Immunosuppressant drug therapy
  2. TACROLIMUS [Suspect]
     Active Substance: TACROLIMUS
     Indication: Immunosuppressant drug therapy

REACTIONS (7)
  - Ocular lymphoma [Unknown]
  - Malignant pleural effusion [Recovered/Resolved]
  - B-cell lymphoma [Unknown]
  - Central nervous system lymphoma [Unknown]
  - Diffuse large B-cell lymphoma [Unknown]
  - Pericardial effusion malignant [Recovered/Resolved]
  - Vitreous detachment [Recovered/Resolved]
